FAERS Safety Report 9176727 (Version 1)
Quarter: 2013Q1

REPORT INFORMATION
  Report Type: Spontaneous
  Country: US (occurrence: US)
  Receive Date: 20130321
  Receipt Date: 20130321
  Transmission Date: 20140127
  Serious: No
  Sender: FDA-Public Use
  Company Number: US-MYLANLABS-2013S1001671

PATIENT
  Age: 73 Year
  Sex: Female

DRUGS (13)
  1. AMLODIPINE BESYLATE TABLETS [Suspect]
     Indication: BLOOD PRESSURE INCREASED
     Dates: start: 20121217
  2. VILAZODONE HYDROCHLORIDE [Suspect]
     Indication: DEPRESSION
     Dates: start: 20121121, end: 20121203
  3. VILAZODONE HYDROCHLORIDE [Suspect]
     Indication: FIBROMYALGIA
     Dates: start: 20121121, end: 20121203
  4. VILAZODONE HYDROCHLORIDE [Suspect]
     Indication: DEPRESSION
     Dates: start: 20121204
  5. VILAZODONE HYDROCHLORIDE [Suspect]
     Indication: FIBROMYALGIA
     Dates: start: 20121204
  6. LOSARTAN [Concomitant]
     Indication: BLOOD PRESSURE INCREASED
     Dates: start: 20121001, end: 20121203
  7. PREMARIN [Concomitant]
     Dates: end: 20121203
  8. NIASPAN [Concomitant]
     Indication: BLOOD CHOLESTEROL INCREASED
  9. WELLBUTRIN [Concomitant]
     Indication: DEPRESSION
  10. KLONOPIN [Concomitant]
     Indication: ANXIETY
  11. ASA [Concomitant]
  12. LOSARTAN [Concomitant]
     Indication: BLOOD PRESSURE INCREASED
     Dates: start: 20121204
  13. PREMARIN [Concomitant]
     Dates: start: 20121204

REACTIONS (4)
  - Palpitations [Not Recovered/Not Resolved]
  - Musculoskeletal stiffness [Not Recovered/Not Resolved]
  - Flushing [Not Recovered/Not Resolved]
  - Muscle spasms [Not Recovered/Not Resolved]
